FAERS Safety Report 14673346 (Version 1)
Quarter: 2018Q1

REPORT INFORMATION
  Report Type: Spontaneous
  Country: US (occurrence: US)
  Receive Date: 20180322
  Receipt Date: 20180322
  Transmission Date: 20180509
  Serious: Yes (Hospitalization)
  Sender: FDA-Public Use
  Company Number: None

PATIENT
  Age: 32 Year
  Sex: Female
  Weight: 65.77 kg

DRUGS (4)
  1. TRAZODONE [Concomitant]
     Active Substance: TRAZODONE HYDROCHLORIDE
  2. MIRENA [Suspect]
     Active Substance: LEVONORGESTREL
     Dates: start: 20150323
  3. ZOLOFT [Concomitant]
     Active Substance: SERTRALINE HYDROCHLORIDE
  4. MULTIVITAMIN [Concomitant]
     Active Substance: VITAMINS

REACTIONS (10)
  - Nipple pain [None]
  - Libido decreased [None]
  - Internal haemorrhage [None]
  - Ruptured ectopic pregnancy [None]
  - Abdominal pain [None]
  - Dyspareunia [None]
  - Ovarian mass [None]
  - Pregnancy with contraceptive device [None]
  - Adnexal torsion [None]
  - Perinatal depression [None]

NARRATIVE: CASE EVENT DATE: 20171130
